FAERS Safety Report 7444484-3 (Version None)
Quarter: 2011Q2

REPORT INFORMATION
  Report Type: 
  Country: None (occurrence: None)
  Receive Date: 20110429
  Receipt Date: 20110418
  Transmission Date: 20111010
  Serious: Yes (Hospitalization)
  Sender: FDA-Public Use
  Company Number: US-BAYER-200941440NA

PATIENT
  Age: 18 Year
  Sex: Female
  Weight: 68.182 kg

DRUGS (12)
  1. BUSPAR [Concomitant]
     Indication: PRODUCT USED FOR UNKNOWN INDICATION
     Dosage: 15 MG (DAILY DOSE), QD, ORAL
     Route: 048
     Dates: start: 20090728
  2. IBUPROFEN [Concomitant]
  3. NORETHINDRONE [Concomitant]
     Indication: PRODUCT USED FOR UNKNOWN INDICATION
     Dosage: LAST REFILL: 29-MAR-2010
     Dates: start: 20091006
  4. TRAMADOL [Concomitant]
  5. WELLBUTRIN [Concomitant]
     Indication: PRODUCT USED FOR UNKNOWN INDICATION
     Dosage: 60 MG (DAILY DOSE), BID, ORAL
     Route: 048
     Dates: start: 20090728
  6. BUSPIRONE HCL [Concomitant]
  7. ACETAMINOPHEN W/ CODEINE [Concomitant]
  8. YAZ [Suspect]
     Indication: CONTRACEPTION
     Route: 048
     Dates: start: 20090601, end: 20091001
  9. BUDEPRION [Concomitant]
  10. FAMOTIDINE [Concomitant]
  11. NIFEDIPINE [Concomitant]
  12. SUCRALFATE [Concomitant]

REACTIONS (6)
  - NAUSEA [None]
  - VOMITING [None]
  - CHOLELITHIASIS [None]
  - CHOLECYSTITIS CHRONIC [None]
  - PANCREATITIS [None]
  - ABDOMINAL PAIN [None]
